FAERS Safety Report 9253531 (Version 3)
Quarter: 2013Q4

REPORT INFORMATION
  Report Type: Spontaneous
  Country: US (occurrence: US)
  Receive Date: 20130425
  Receipt Date: 20131018
  Transmission Date: 20140711
  Serious: Yes (Other)
  Sender: FDA-Public Use
  Company Number: US-ASTRAZENECA-2013SE27441

PATIENT
  Age: 71 Year
  Sex: Female

DRUGS (14)
  1. NEXIUM [Suspect]
     Indication: DYSPEPSIA
     Dosage: DAILY
     Route: 048
     Dates: start: 2009, end: 2011
  2. NEXIUM [Suspect]
     Indication: ABDOMINAL PAIN UPPER
     Dosage: DAILY
     Route: 048
     Dates: start: 2009, end: 2011
  3. NEXIUM [Suspect]
     Indication: GASTROOESOPHAGEAL REFLUX DISEASE
     Dosage: DAILY
     Route: 048
     Dates: start: 2009, end: 2011
  4. NEXIUM [Suspect]
     Indication: DYSPEPSIA
     Route: 048
     Dates: start: 20100728
  5. NEXIUM [Suspect]
     Indication: ABDOMINAL PAIN UPPER
     Route: 048
     Dates: start: 20100728
  6. NEXIUM [Suspect]
     Indication: GASTROOESOPHAGEAL REFLUX DISEASE
     Route: 048
     Dates: start: 20100728
  7. TUMS [Concomitant]
  8. DIOVAN [Concomitant]
     Dosage: 160MG/12.5 MG DAILY
  9. DIOVAN [Concomitant]
     Dates: start: 20100728
  10. VITAMINS D3 [Concomitant]
     Dosage: DAILY
  11. SYNTHROID [Concomitant]
     Dates: start: 20100728
  12. BENADRYL [Concomitant]
  13. ROLAIDS [Concomitant]
  14. MYLANTA [Concomitant]

REACTIONS (8)
  - Cataract [Unknown]
  - Osteoporosis [Unknown]
  - Bone density decreased [Unknown]
  - Bone disorder [Unknown]
  - Multiple fractures [Unknown]
  - Cardiac fibrillation [Unknown]
  - Vitamin D deficiency [Unknown]
  - Osteopenia [Unknown]
